FAERS Safety Report 4620096-1 (Version None)
Quarter: 2005Q1

REPORT INFORMATION
  Report Type: 
  Country: None (occurrence: None)
  Receive Date: 20050328
  Receipt Date: 20020207
  Transmission Date: 20050727
  Serious: Yes (Hospitalization, Other)
  Sender: FDA-Public Use
  Company Number: US-BRISTOL-MYERS SQUIBB COMPANY-11713583

PATIENT
  Age: 64 Year
  Sex: Female

DRUGS (7)
  1. TAXOL [Suspect]
     Indication: BREAST CANCER METASTATIC
     Dates: start: 20020122
  2. BONEFOS [Concomitant]
  3. EMCONCOR [Concomitant]
  4. ASPIRIN [Concomitant]
  5. IMOVANE [Concomitant]
  6. LIPITOR [Concomitant]
  7. NIMED [Concomitant]

REACTIONS (4)
  - DYSPHONIA [None]
  - DYSPNOEA [None]
  - MALAISE [None]
  - NAUSEA [None]
